FAERS Safety Report 12959041 (Version 1)
Quarter: 2016Q4

REPORT INFORMATION
  Report Type: Spontaneous
  Country: US (occurrence: US)
  Receive Date: 20161118
  Receipt Date: 20161118
  Transmission Date: 20170207
  Serious: Yes (Hospitalization)
  Sender: FDA-Public Use
  Company Number: None

PATIENT
  Age: 76 Year
  Sex: Female

DRUGS (3)
  1. NINLARO [Concomitant]
     Active Substance: IXAZOMIB
  2. REVLIMID [Concomitant]
     Active Substance: LENALIDOMIDE
  3. C-DEXAMETHASONE 40 MG CAP [Suspect]
     Active Substance: DEXAMETHASONE
     Indication: PLASMA CELL MYELOMA
     Dosage: 40 MG CAP 1 CAP ON D 1,7, + 15 PO
     Route: 048
     Dates: start: 20160902, end: 20161107

REACTIONS (3)
  - Urinary tract infection [None]
  - Dehydration [None]
  - Full blood count decreased [None]
